FAERS Safety Report 16504349 (Version 2)
Quarter: 2019Q3

REPORT INFORMATION
  Report Type: Spontaneous
  Country: US (occurrence: US)
  Receive Date: 20190701
  Receipt Date: 20190708
  Transmission Date: 20191004
  Serious: No
  Sender: FDA-Public Use
  Company Number: US-PFIZER INC-2019276607

PATIENT
  Age: 48 Year
  Sex: Female

DRUGS (1)
  1. DAYPRO [Suspect]
     Active Substance: OXAPROZIN
     Dosage: 600 MG, 2X/DAY
     Route: 048
     Dates: end: 20180924

REACTIONS (1)
  - Drug hypersensitivity [Unknown]
